FAERS Safety Report 4590970-3 (Version None)
Quarter: 2005Q1

REPORT INFORMATION
  Report Type: 
  Country: None (occurrence: None)
  Receive Date: 20050222
  Receipt Date: 20050222
  Transmission Date: 20050727
  Serious: Yes (Death)
  Sender: FDA-Public Use
  Company Number: None

PATIENT
  Age: 72 Year
  Sex: Female
  Weight: 56 kg

DRUGS (7)
  1. IRESSA [Suspect]
     Indication: LUNG NEOPLASM MALIGNANT
     Dosage: 250 MG PO QD
     Route: 048
     Dates: start: 20041110, end: 20050218
  2. FASLODEX [Suspect]
     Indication: LUNG NEOPLASM MALIGNANT
     Dosage: 250 MG IM Q MONTH
     Dates: end: 20050202
  3. PRILOSEC [Concomitant]
  4. NEURONTIN [Concomitant]
  5. LEVOXYL [Concomitant]
  6. PREDNISONE [Concomitant]
  7. METROPOLOL [Concomitant]

REACTIONS (3)
  - CARDIAC FAILURE ACUTE [None]
  - CHEST PAIN [None]
  - COMA [None]
